APPROVED DRUG PRODUCT: DEPO-ESTRADIOL
Active Ingredient: ESTRADIOL CYPIONATE
Strength: 1MG/ML
Dosage Form/Route: INJECTABLE;INJECTION
Application: A085470 | Product #001
Applicant: PFIZER INC
Approved: Approved Prior to Jan 1, 1982 | RLD: No | RS: No | Type: DISCN